FAERS Safety Report 7641097-5 (Version None)
Quarter: 2011Q3

REPORT INFORMATION
  Report Type: 
  Country: None (occurrence: None)
  Receive Date: 20110728
  Receipt Date: 20110719
  Transmission Date: 20111222
  Serious: Yes (Hospitalization)
  Sender: FDA-Public Use
  Company Number: US-NOVOPROD-327066

PATIENT
  Age: 60 Year
  Sex: Female
  Weight: 87.982 kg

DRUGS (4)
  1. VICTOZA [Suspect]
     Dosage: 1.2 MG, QD X 1 WEEK
     Route: 058
     Dates: start: 20110201, end: 20110201
  2. VICTOZA [Suspect]
     Indication: TYPE 2 DIABETES MELLITUS
     Dosage: 0.6 MG, QD X 1 WEEK
     Route: 058
     Dates: start: 20110209, end: 20110201
  3. VICTOZA [Suspect]
     Dosage: 1.8 MG, QD
     Route: 058
     Dates: start: 20110201, end: 20110412
  4. METFORMIN HCL [Concomitant]
     Indication: TYPE 2 DIABETES MELLITUS

REACTIONS (5)
  - NAUSEA [None]
  - DEHYDRATION [None]
  - RENAL FAILURE [None]
  - WEIGHT DECREASED [None]
  - VOMITING [None]
